FAERS Safety Report 15836424 (Version 3)
Quarter: 2019Q1

REPORT INFORMATION
  Report Type: Spontaneous
  Country: JP (occurrence: JP)
  Receive Date: 20190117
  Receipt Date: 20190319
  Transmission Date: 20190417
  Serious: Yes (Hospitalization, Other)
  Sender: FDA-Public Use
  Company Number: JP-ROCHE-2246088

PATIENT
  Age: 61 Year
  Sex: Female
  Weight: 42 kg

DRUGS (14)
  1. PERJETA [Suspect]
     Active Substance: PERTUZUMAB
     Indication: BREAST CANCER
     Dosage: ADMINISTRATION PERIOD: 6 COURSES?FROM STRENGTH 420 MG/14ML
     Route: 041
     Dates: start: 20180208
  2. HERCEPTIN [Suspect]
     Active Substance: TRASTUZUMAB
     Dosage: LAST DOSE ON 22/MAR/2018
     Route: 041
     Dates: start: 20180301
  3. KADCYLA [Suspect]
     Active Substance: ADO-TRASTUZUMAB EMTANSINE
     Indication: BREAST CANCER
     Route: 041
     Dates: start: 20180117
  4. HERCEPTIN [Suspect]
     Active Substance: TRASTUZUMAB
     Indication: BREAST CANCER
     Dosage: ADMINISTRATION PERIOD: 6 COURSES
     Route: 041
     Dates: start: 20180208
  5. TAXOTERE [Concomitant]
     Active Substance: DOCETAXEL
     Route: 041
     Dates: start: 20180322, end: 20180322
  6. TAXOTERE [Concomitant]
     Active Substance: DOCETAXEL
     Indication: BREAST CANCER
     Dosage: ADMINISTRATION PERIOD: 6 COURSES
     Route: 041
     Dates: start: 20180208, end: 20180208
  7. TAXOTERE [Concomitant]
     Active Substance: DOCETAXEL
     Route: 065
     Dates: start: 20160905, end: 20161221
  8. TAXOL [Concomitant]
     Active Substance: PACLITAXEL
     Route: 041
     Dates: start: 20180322, end: 20180322
  9. TAXOTERE [Concomitant]
     Active Substance: DOCETAXEL
     Route: 041
     Dates: start: 20180308, end: 20180308
  10. TAXOL [Concomitant]
     Active Substance: PACLITAXEL
     Route: 041
     Dates: start: 20180308, end: 20180308
  11. PERJETA [Suspect]
     Active Substance: PERTUZUMAB
     Dosage: LAST DOSE ON 22/MAR/2018
     Route: 041
     Dates: start: 20180301
  12. TAXOTERE [Concomitant]
     Active Substance: DOCETAXEL
     Route: 041
     Dates: start: 20180301, end: 20180301
  13. TAXOL [Concomitant]
     Active Substance: PACLITAXEL
     Route: 041
     Dates: start: 20180301, end: 20180301
  14. TAXOL [Concomitant]
     Active Substance: PACLITAXEL
     Indication: BREAST CANCER
     Route: 041
     Dates: start: 20180208, end: 20180208

REACTIONS (3)
  - Blood bilirubin increased [Recovered/Resolved]
  - Febrile neutropenia [Unknown]
  - Alanine aminotransferase increased [Recovered/Resolved]

NARRATIVE: CASE EVENT DATE: 20180117
